FAERS Safety Report 7654530-X (Version None)
Quarter: 2011Q3

REPORT INFORMATION
  Report Type: 
  Country: None (occurrence: None)
  Receive Date: 20110803
  Receipt Date: 20110727
  Transmission Date: 20111222
  Serious: Yes (Hospitalization, Other)
  Sender: FDA-Public Use
  Company Number: PT-B.I. PHARMACEUTICALS,INC./RIDGEFIELD-2011-DE-03929GD

PATIENT
  Age: 85 Year
  Sex: Male

DRUGS (1)
  1. MELOXICAM [Suspect]

REACTIONS (2)
  - GOUTY ARTHRITIS [None]
  - TOXIC EPIDERMAL NECROLYSIS [None]
